FAERS Safety Report 8460641-1 (Version None)
Quarter: 2012Q2

REPORT INFORMATION
  Report Type: 
  Country: None (occurrence: None)
  Receive Date: 20120622
  Receipt Date: 20120614
  Transmission Date: 20120825
  Serious: Yes (Death, Other)
  Sender: FDA-Public Use
  Company Number: US-ROCHE-1059645

PATIENT
  Sex: Male

DRUGS (14)
  1. ASPIRIN [Concomitant]
     Route: 048
  2. ENOXAPARIN [Concomitant]
     Route: 058
  3. OMEPRAZOLE [Concomitant]
     Route: 048
  4. DIPHENHYDRAMINE/MAALOX/LIDOCAINE SUSPENSION [Concomitant]
     Route: 048
  5. LASIX [Concomitant]
     Route: 048
  6. LOPERAMIDE [Concomitant]
     Route: 048
  7. ZELBORAF [Suspect]
     Indication: MALIGNANT MELANOMA
     Dosage: LAST DOSE PRIOR TO AE WAS 2/JUN/2012
     Route: 048
  8. OXYCODONE HCL [Concomitant]
     Route: 048
  9. SODIUM CHLORIDE [Concomitant]
     Route: 045
  10. ERGOCALCIFEROL [Concomitant]
     Route: 048
  11. LORAZEPAM [Concomitant]
     Route: 048
  12. POLYETHYLENE GLYCOL [Concomitant]
     Route: 048
  13. PROMETHAZINE [Concomitant]
     Route: 048
  14. DEXAMETHASONE [Concomitant]
     Dosage: LAST DOSE PRIOR TO AE WAS 2/JUN/2012
     Route: 048

REACTIONS (15)
  - DEHYDRATION [None]
  - NAUSEA [None]
  - DECREASED APPETITE [None]
  - RASH [None]
  - SEPSIS [None]
  - DEATH [None]
  - HYPERAMMONAEMIA [None]
  - MENTAL STATUS CHANGES [None]
  - WEIGHT DECREASED [None]
  - MYALGIA [None]
  - BRAIN NEOPLASM [None]
  - DIARRHOEA [None]
  - OEDEMA PERIPHERAL [None]
  - FATIGUE [None]
  - ARTHRALGIA [None]
